FAERS Safety Report 19054893 (Version 6)
Quarter: 2022Q1

REPORT INFORMATION
  Report Type: Spontaneous
  Country: JP (occurrence: JP)
  Receive Date: 20210325
  Receipt Date: 20220317
  Transmission Date: 20220423
  Serious: Yes (Hospitalization)
  Sender: FDA-Public Use
  Company Number: JP-ONO-2021JP007110

PATIENT
  Age: 51 Year
  Sex: Male
  Weight: 57.5 kg

DRUGS (34)
  1. PARSABIV [Suspect]
     Active Substance: ETELCALCETIDE HYDROCHLORIDE
     Indication: Hyperparathyroidism secondary
     Dosage: 2.5 MG, Q56H
     Route: 010
     Dates: start: 20210209, end: 20210417
  2. PARSABIV [Suspect]
     Active Substance: ETELCALCETIDE HYDROCHLORIDE
     Dosage: 2.5 MG, Q56H
     Route: 010
     Dates: start: 20210614
  3. MAXACALCITOL [Concomitant]
     Active Substance: MAXACALCITOL
     Dosage: 5 MUG, Q56H
     Route: 042
     Dates: start: 20180709, end: 20181013
  4. MAXACALCITOL [Concomitant]
     Active Substance: MAXACALCITOL
     Dosage: 10 MUG, Q56H
     Route: 042
     Dates: start: 20181015, end: 20181109
  5. MAXACALCITOL [Concomitant]
     Active Substance: MAXACALCITOL
     Dosage: 5 MUG, Q56H
     Route: 042
     Dates: start: 20181112, end: 20181208
  6. MAXACALCITOL [Concomitant]
     Active Substance: MAXACALCITOL
     Dosage: 10 MUG, Q56H
     Route: 042
     Dates: start: 20181210, end: 20190111
  7. MAXACALCITOL [Concomitant]
     Active Substance: MAXACALCITOL
     Dosage: 5 MUG, Q56H
     Route: 042
     Dates: start: 20190114, end: 20190608
  8. MAXACALCITOL [Concomitant]
     Active Substance: MAXACALCITOL
     Dosage: 10 MUG, Q56H
     Route: 042
     Dates: start: 20190611, end: 20190706
  9. MAXACALCITOL [Concomitant]
     Active Substance: MAXACALCITOL
     Dosage: 5 MUG, Q56H
     Route: 042
     Dates: start: 20190709, end: 20190815
  10. MAXACALCITOL [Concomitant]
     Active Substance: MAXACALCITOL
     Dosage: 10 MUG, Q56H
     Route: 042
     Dates: start: 20190819, end: 20190914
  11. MAXACALCITOL [Concomitant]
     Active Substance: MAXACALCITOL
     Dosage: 5 MUG, Q56H
     Route: 042
     Dates: start: 20190917, end: 20191012
  12. MAXACALCITOL [Concomitant]
     Active Substance: MAXACALCITOL
     Dosage: 5 MUG, Q84H
     Route: 042
     Dates: start: 20191111, end: 20200111
  13. MAXACALCITOL [Concomitant]
     Active Substance: MAXACALCITOL
     Dosage: 5 MUG, Q56H
     Route: 042
     Dates: start: 20200114, end: 20200307
  14. MAXACALCITOL [Concomitant]
     Active Substance: MAXACALCITOL
     Dosage: 5 MUG, Q84H
     Route: 042
     Dates: start: 20200310, end: 20200613
  15. MAXACALCITOL [Concomitant]
     Active Substance: MAXACALCITOL
     Dosage: 5 MUG, QW
     Route: 042
     Dates: start: 20200616, end: 20200711
  16. MAXACALCITOL [Concomitant]
     Active Substance: MAXACALCITOL
     Dosage: 5 MUG, Q56H
     Route: 042
     Dates: start: 20200714, end: 20200919
  17. MAXACALCITOL [Concomitant]
     Active Substance: MAXACALCITOL
     Dosage: 10 MUG, Q56H
     Route: 042
     Dates: start: 20200922, end: 20201013
  18. MAXACALCITOL [Concomitant]
     Active Substance: MAXACALCITOL
     Dosage: 5 MUG, Q56H
     Route: 042
     Dates: start: 20201214, end: 20210306
  19. MAXACALCITOL [Concomitant]
     Active Substance: MAXACALCITOL
     Dosage: 10 MUG, Q56H
     Route: 042
     Dates: start: 20210309, end: 20210417
  20. MAXACALCITOL [Concomitant]
     Active Substance: MAXACALCITOL
     Dosage: 5 MUG, Q56H
     Route: 042
     Dates: start: 20210517, end: 20210806
  21. MAXACALCITOL [Concomitant]
     Active Substance: MAXACALCITOL
     Dosage: 5 MUG, Q84H
     Route: 042
     Dates: start: 20210809, end: 20220211
  22. MIRCERA [Concomitant]
     Active Substance: METHOXY POLYETHYLENE GLYCOL-EPOETIN BETA
     Dosage: 75 MUG, Q4W
     Route: 065
  23. IRON SUCROSE [Concomitant]
     Active Substance: IRON SUCROSE
     Dosage: 120 MILLIGRAM, QWK
     Route: 065
     Dates: start: 20190704, end: 20190723
  24. IRON SUCROSE [Concomitant]
     Active Substance: IRON SUCROSE
     Dosage: 120 MILLIGRAM, QWK
     Route: 065
     Dates: start: 20190815, end: 20190905
  25. IRON SUCROSE [Concomitant]
     Active Substance: IRON SUCROSE
     Dosage: 120 MILLIGRAM, QWK
     Route: 065
     Dates: start: 20200116, end: 20200206
  26. IRON SUCROSE [Concomitant]
     Active Substance: IRON SUCROSE
     Dosage: 120 MILLIGRAM, QWK
     Route: 065
     Dates: start: 20200319, end: 20200409
  27. IRON SUCROSE [Concomitant]
     Active Substance: IRON SUCROSE
     Dosage: 120 MILLIGRAM, QWK
     Route: 065
     Dates: start: 20200820, end: 20200910
  28. IRON SUCROSE [Concomitant]
     Active Substance: IRON SUCROSE
     Dosage: 120 MILLIGRAM, QWK
     Route: 065
     Dates: start: 20210128, end: 20210218
  29. IRON SUCROSE [Concomitant]
     Active Substance: IRON SUCROSE
     Dosage: 120 MILLIGRAM, QWK
     Route: 065
     Dates: start: 20210512, end: 20210602
  30. IRON SUCROSE [Concomitant]
     Active Substance: IRON SUCROSE
     Dosage: 120 MILLIGRAM, QWK
     Route: 065
     Dates: start: 20210804, end: 20210825
  31. CALCIUM CARBONATE [Concomitant]
     Active Substance: CALCIUM CARBONATE
     Dosage: 3000 MG, EVERYDAY
     Route: 048
     Dates: end: 20190404
  32. CALCIUM CARBONATE [Concomitant]
     Active Substance: CALCIUM CARBONATE
     Dosage: 2000 MG, EVERYDAY
     Route: 048
     Dates: start: 20190405, end: 20200724
  33. CALCIUM CARBONATE [Concomitant]
     Active Substance: CALCIUM CARBONATE
     Dosage: 2000 MG, EVERYDAY
     Route: 048
     Dates: start: 20200905, end: 20201113
  34. CALCIUM CARBONATE [Concomitant]
     Active Substance: CALCIUM CARBONATE
     Dosage: 1000 MG, EVERYDAY
     Route: 048
     Dates: start: 20201114

REACTIONS (1)
  - Pleural effusion [Recovered/Resolved]

NARRATIVE: CASE EVENT DATE: 20210309
